FAERS Safety Report 4338520-0 (Version None)
Quarter: 2004Q2

REPORT INFORMATION
  Report Type: 
  Country: None (occurrence: None)
  Receive Date: 20040414
  Receipt Date: 20040409
  Transmission Date: 20050107
  Serious: Yes (Hospitalization)
  Sender: FDA-Public Use
  Company Number: FR-GLAXOSMITHKLINE-B0329538A

PATIENT
  Age: 60 Year
  Sex: Female

DRUGS (7)
  1. AMOXICILLIN [Suspect]
     Indication: DENTAL DISORDER PROPHYLAXIS
     Dosage: 1G SINGLE DOSE
     Route: 048
     Dates: start: 20031013, end: 20031013
  2. ISOPTIN [Concomitant]
     Route: 048
  3. KARDEGIC [Concomitant]
     Route: 048
  4. ELISOR [Concomitant]
     Route: 048
  5. TRIATEC [Concomitant]
     Route: 048
  6. ART [Concomitant]
     Route: 048
  7. VIOXX [Concomitant]
     Route: 048

REACTIONS (5)
  - DYSPNOEA [None]
  - PRURITUS [None]
  - RASH GENERALISED [None]
  - STRIDOR [None]
  - URTICARIA [None]
